FAERS Safety Report 23762301 (Version 1)
Quarter: 2024Q2

REPORT INFORMATION
  Report Type: Report from Study
  Country: US (occurrence: US)
  Receive Date: 20240419
  Receipt Date: 20240419
  Transmission Date: 20240715
  Serious: Yes (Death)
  Sender: FDA-Public Use
  Company Number: US-BAYER-2024A058592

PATIENT
  Age: 50 Year
  Sex: Female
  Weight: 104.31 kg

DRUGS (22)
  1. ADEMPAS [Suspect]
     Active Substance: RIOCIGUAT
     Indication: Pulmonary arterial hypertension
     Dosage: UNK
     Dates: start: 20221108
  2. ADEMPAS [Suspect]
     Active Substance: RIOCIGUAT
     Indication: Pulmonary arterial hypertension
     Dosage: 1.5 MG, TID
     Route: 048
  3. JARDIANCE [Concomitant]
     Active Substance: EMPAGLIFLOZIN
  4. ATORVASTATIN CALCIUM [Concomitant]
     Active Substance: ATORVASTATIN CALCIUM
  5. POTASSIUM CHLORIDE [Concomitant]
     Active Substance: POTASSIUM CHLORIDE
  6. HUMULIN R [Concomitant]
     Active Substance: INSULIN HUMAN
  7. HUMALOG KWIKPEN [Concomitant]
     Active Substance: INSULIN LISPRO
  8. MIRTAZAPINE [Concomitant]
     Active Substance: MIRTAZAPINE
  9. TORSEMIDE [Concomitant]
     Active Substance: TORSEMIDE
  10. OPSUMIT [Concomitant]
     Active Substance: MACITENTAN
  11. ALLOPURINOL [Concomitant]
     Active Substance: ALLOPURINOL
  12. TRELEGY ELLIPTA [Concomitant]
     Active Substance: FLUTICASONE FUROATE\UMECLIDINIUM BROMIDE\VILANTEROL TRIFENATATE
  13. FLONASE ALLERGY RELIEF [Concomitant]
     Active Substance: FLUTICASONE PROPIONATE
  14. ALBUTEROL SULFATE [Concomitant]
     Active Substance: ALBUTEROL SULFATE
  15. BUPROPION HYDROCHLORIDE [Concomitant]
     Active Substance: BUPROPION HYDROCHLORIDE
  16. UPTRAVI [Concomitant]
     Active Substance: SELEXIPAG
  17. TRULICITY [Concomitant]
     Active Substance: DULAGLUTIDE
  18. SPIRONOLACTONE [Concomitant]
     Active Substance: SPIRONOLACTONE
  19. OXYGEN [Concomitant]
     Active Substance: OXYGEN
  20. NUCALA [Concomitant]
     Active Substance: MEPOLIZUMAB
  21. GABAPENTIN [Concomitant]
     Active Substance: GABAPENTIN
  22. CETIRIZINE [Concomitant]
     Active Substance: CETIRIZINE HYDROCHLORIDE

REACTIONS (1)
  - Death [Fatal]
